FAERS Safety Report 19151173 (Version 1)
Quarter: 2021Q2

REPORT INFORMATION
  Report Type: Spontaneous
  Country: ES (occurrence: ES)
  Receive Date: 20210419
  Receipt Date: 20210419
  Transmission Date: 20210717
  Serious: Yes (Other)
  Sender: FDA-Public Use
  Company Number: ES-LUPIN PHARMACEUTICALS INC.-2021-04913

PATIENT
  Age: 90 Year
  Sex: Female

DRUGS (5)
  1. DULOXETINE. [Suspect]
     Active Substance: DULOXETINE
     Indication: PARKINSON^S DISEASE
     Dosage: 30 MILLIGRAM, QD
     Route: 065
  2. SAFINAMIDE [Suspect]
     Active Substance: SAFINAMIDE
     Indication: DEPRESSIVE SYMPTOM
  3. SAFINAMIDE [Suspect]
     Active Substance: SAFINAMIDE
     Indication: PARKINSON^S DISEASE
     Dosage: 50 MILLIGRAM, QD
     Route: 065
  4. TRAMADOL. [Suspect]
     Active Substance: TRAMADOL
     Indication: PRODUCT USED FOR UNKNOWN INDICATION
     Dosage: 37.5 MILLIGRAM, QD
     Route: 065
  5. DULOXETINE. [Suspect]
     Active Substance: DULOXETINE
     Indication: DEPRESSIVE SYMPTOM

REACTIONS (6)
  - Sleep disorder [Recovering/Resolving]
  - Toxicity to various agents [Unknown]
  - Nervousness [Recovering/Resolving]
  - Confusional state [Recovering/Resolving]
  - Serum serotonin increased [Recovering/Resolving]
  - Myoclonus [Recovering/Resolving]
